FAERS Safety Report 18880216 (Version 8)
Quarter: 2022Q1

REPORT INFORMATION
  Report Type: Report from Study
  Country: US (occurrence: None)
  Receive Date: 20210211
  Receipt Date: 20220311
  Transmission Date: 20220423
  Serious: Yes (Hospitalization)
  Sender: FDA-Public Use
  Company Number: US-ROCHE-2745897

PATIENT
  Age: 49 Year
  Sex: Female
  Weight: 94.7 kg

DRUGS (30)
  1. COBIMETINIB [Suspect]
     Active Substance: COBIMETINIB
     Indication: Rectal cancer
     Dosage: ON 22/DEC/2020, THE SUBJECT RECEIVED THE LAST DOSE OF STUDY DRUG COBIMETINIB PRIOR TO EVENT ONSET.?O
     Route: 048
     Dates: start: 20201214, end: 20210120
  2. COBIMETINIB [Suspect]
     Active Substance: COBIMETINIB
     Route: 048
     Dates: start: 20210113, end: 20210114
  3. LORAZEPAM [Concomitant]
     Active Substance: LORAZEPAM
     Indication: Anxiety
     Route: 065
     Dates: start: 20200203
  4. HYDROMORPHONE [Concomitant]
     Active Substance: HYDROMORPHONE
     Indication: Pain
     Route: 065
     Dates: start: 20200521
  5. PROCHLORPERAZINE EDISYLATE [Concomitant]
     Active Substance: PROCHLORPERAZINE EDISYLATE
     Indication: Nausea
     Route: 065
     Dates: start: 20200821
  6. FENTANYL [Concomitant]
     Active Substance: FENTANYL
     Indication: Pain
     Route: 065
     Dates: start: 20201201
  7. POTASSIUM CHLORIDE [Concomitant]
     Active Substance: POTASSIUM CHLORIDE
  8. MAGNESIUM SULFATE [Concomitant]
     Active Substance: MAGNESIUM SULFATE
  9. CHLORHEXIDINE GLUCONATE [Concomitant]
     Active Substance: CHLORHEXIDINE GLUCONATE
  10. CHLORHEXIDINE [Concomitant]
     Active Substance: CHLORHEXIDINE
  11. ACETAMINOPHEN [Concomitant]
     Active Substance: ACETAMINOPHEN
     Indication: Pain
  12. ACETAMINOPHEN [Concomitant]
     Active Substance: ACETAMINOPHEN
     Indication: Pyrexia
  13. SENNA [Concomitant]
     Active Substance: SENNA LEAF\SENNOSIDES\SENNOSIDES A AND B
     Dates: start: 20210111
  14. COLACE [Concomitant]
     Active Substance: DOCUSATE SODIUM
     Indication: Constipation
  15. CETIRIZINE [Concomitant]
     Active Substance: CETIRIZINE HYDROCHLORIDE
  16. CLONAZEPAM [Concomitant]
     Active Substance: CLONAZEPAM
  17. DEXAMETHASONE [Concomitant]
     Active Substance: DEXAMETHASONE
  18. DRISDOL [Concomitant]
     Active Substance: ERGOCALCIFEROL
  19. GABAPENTIN [Concomitant]
     Active Substance: GABAPENTIN
  20. JUNEL [Concomitant]
     Active Substance: ETHINYL ESTRADIOL\NORETHINDRONE ACETATE
  21. MAGNESIUM OXIDE [Concomitant]
     Active Substance: MAGNESIUM OXIDE
  22. MIRALAX [Concomitant]
     Active Substance: POLYETHYLENE GLYCOL 3350
  23. SIMETHICONE (DIMETHICONE) [Concomitant]
     Active Substance: DIMETHICONE
  24. BISACODYL [Concomitant]
     Active Substance: BISACODYL
  25. ERGOCALCIFEROL [Concomitant]
     Active Substance: ERGOCALCIFEROL
  26. HYDROCORTISONE [Concomitant]
     Active Substance: HYDROCORTISONE
  27. METRONIDAZOLE [Concomitant]
     Active Substance: METRONIDAZOLE
  28. NEOMYCIN SULFATE [Concomitant]
     Active Substance: NEOMYCIN SULFATE
  29. OMEPRAZOLE [Concomitant]
     Active Substance: OMEPRAZOLE
  30. RINGERS SOLUTION [Concomitant]
     Active Substance: CALCIUM CHLORIDE\POTASSIUM CHLORIDE\SODIUM CHLORIDE
     Dosage: INFUSION 100 ML PER HOUR INTRAVENOUSLY

REACTIONS (2)
  - Rectal haemorrhage [Recovered/Resolved]
  - Proctalgia [Recovered/Resolved]

NARRATIVE: CASE EVENT DATE: 20210120
